APPROVED DRUG PRODUCT: LEVETIRACETAM
Active Ingredient: LEVETIRACETAM
Strength: 1GM
Dosage Form/Route: TABLET;ORAL
Application: A090484 | Product #001 | TE Code: AB
Applicant: ORBION PHARMACEUTICALS PRIVATE LTD
Approved: Aug 5, 2010 | RLD: No | RS: No | Type: RX